FAERS Safety Report 9695917 (Version 1)
Quarter: 2013Q4

REPORT INFORMATION
  Report Type: Spontaneous
  Country: US (occurrence: US)
  Receive Date: 20131119
  Receipt Date: 20131119
  Transmission Date: 20140711
  Serious: No
  Sender: FDA-Public Use
  Company Number: US-BAYER-2013-141553

PATIENT
  Age: 73 Year
  Sex: Female
  Weight: 54.42 kg

DRUGS (5)
  1. ALEVE CAPLET [Suspect]
     Indication: BACK PAIN
     Dosage: 1 DF, BID
     Route: 048
     Dates: start: 2011
  2. ALEVE CAPLET [Suspect]
     Indication: PAIN IN EXTREMITY
  3. VITAMIN C [Concomitant]
  4. TOPROL XL [Concomitant]
  5. MAGNESIUM [Concomitant]

REACTIONS (1)
  - Incorrect drug administration duration [None]
